FAERS Safety Report 9199183 (Version 1)
Quarter: 2013Q1

REPORT INFORMATION
  Report Type: Spontaneous
  Country: US (occurrence: US)
  Receive Date: 20130329
  Receipt Date: 20130329
  Transmission Date: 20140127
  Serious: No
  Sender: FDA-Public Use
  Company Number: US-009507513-1303USA012824

PATIENT
  Age: 30 Year
  Sex: Female

DRUGS (2)
  1. NUVARING [Suspect]
     Indication: CONTRACEPTION
     Dosage: 1 DF, 3 WEEKS
     Route: 067
     Dates: start: 201102
  2. NUVARING [Suspect]
     Indication: MENSTRUATION IRREGULAR

REACTIONS (5)
  - Dyspnoea [Unknown]
  - Metrorrhagia [Unknown]
  - Back pain [Unknown]
  - Nausea [Unknown]
  - Alopecia [Unknown]
